FAERS Safety Report 7379772-2 (Version None)
Quarter: 2011Q1

REPORT INFORMATION
  Report Type: 
  Country: None (occurrence: None)
  Receive Date: 20110329
  Receipt Date: 20110321
  Transmission Date: 20110831
  Serious: Yes (Hospitalization)
  Sender: FDA-Public Use
  Company Number: FR-ASTELLAS-2011US001156

PATIENT
  Sex: Male

DRUGS (19)
  1. IRBESARTAN [Concomitant]
     Indication: PRODUCT USED FOR UNKNOWN INDICATION
     Dosage: 150 MG, UID/QD
     Route: 065
  2. COLCHIMAX [Concomitant]
     Indication: PRODUCT USED FOR UNKNOWN INDICATION
     Dosage: 1 DF, UID/QD
     Route: 065
  3. TAZOCILLINE [Concomitant]
     Indication: ANAL FISSURE
     Dosage: 4 G, TID
     Route: 065
     Dates: start: 20101213
  4. TIENAM [Concomitant]
     Indication: PRODUCT USED FOR UNKNOWN INDICATION
     Dosage: UNK
     Route: 065
     Dates: start: 20101215, end: 20101229
  5. AMIKLIN [Concomitant]
     Indication: PRODUCT USED FOR UNKNOWN INDICATION
     Dosage: UNK
     Route: 065
     Dates: start: 20101215
  6. VFEND [Suspect]
     Indication: PRODUCT USED FOR UNKNOWN INDICATION
     Dosage: 200 MG, BID
     Route: 048
     Dates: start: 20101229, end: 20110112
  7. CLAVENTIN [Suspect]
     Indication: STENOTROPHOMONAS INFECTION
  8. FLAGYL [Concomitant]
     Dosage: UNK
     Route: 065
     Dates: start: 20110102
  9. CIFLOX [Concomitant]
     Indication: PRODUCT USED FOR UNKNOWN INDICATION
     Dosage: UNK
     Route: 065
     Dates: start: 20110102
  10. AMBISOME [Suspect]
     Indication: LUNG DISORDER
     Dosage: 800 MG, UNKNOWN/D
     Route: 042
     Dates: start: 20110112, end: 20110112
  11. TARGOCID [Concomitant]
     Indication: PRODUCT USED FOR UNKNOWN INDICATION
     Dosage: UNK
     Route: 065
     Dates: start: 20101231
  12. TIENAM [Concomitant]
     Dosage: UNK
     Route: 065
     Dates: start: 20110102
  13. CLAVENTIN [Suspect]
     Indication: LUNG DISORDER
     Dosage: 5 G/200 MG, UNKNOWN/D
     Route: 065
     Dates: start: 20110112, end: 20110114
  14. OMEXEL LP [Concomitant]
     Indication: PRODUCT USED FOR UNKNOWN INDICATION
     Dosage: 0.4 UNK, UID/QD
     Route: 065
  15. PERMIXON [Concomitant]
     Indication: PRODUCT USED FOR UNKNOWN INDICATION
     Dosage: 160 MG, UID/QD
     Route: 065
  16. ROCEPHIN [Concomitant]
     Indication: PRODUCT USED FOR UNKNOWN INDICATION
     Dosage: UNK
     Route: 065
     Dates: start: 20101229, end: 20110102
  17. AMBISOME [Suspect]
     Indication: ZYGOMYCOSIS
     Dosage: 50 MG, UNKNOWN/D
     Route: 065
  18. CRESTOR [Concomitant]
     Indication: PRODUCT USED FOR UNKNOWN INDICATION
     Dosage: 5 MG, UID/QD
     Route: 065
  19. FLAGYL [Concomitant]
     Indication: PRODUCT USED FOR UNKNOWN INDICATION
     Dosage: UNK
     Route: 065
     Dates: start: 20101215, end: 20101229

REACTIONS (3)
  - RENAL FAILURE ACUTE [None]
  - RENAL TUBULAR NECROSIS [None]
  - TUBULOINTERSTITIAL NEPHRITIS [None]
